FAERS Safety Report 12206456 (Version 1)
Quarter: 2016Q1

REPORT INFORMATION
  Report Type: Spontaneous
  Country: US (occurrence: US)
  Receive Date: 20160324
  Receipt Date: 20160324
  Transmission Date: 20160526
  Serious: No
  Sender: FDA-Public Use
  Company Number: US-PFIZER INC-2016133190

PATIENT
  Age: 60 Year
  Sex: Female
  Weight: 57 kg

DRUGS (8)
  1. VENLAFAXINE [Concomitant]
     Active Substance: VENLAFAXINE HYDROCHLORIDE
     Indication: MULTIPLE SCLEROSIS
     Dosage: 75 MG, 1X/DAY
     Route: 048
  2. VENLAFAXINE [Concomitant]
     Active Substance: VENLAFAXINE HYDROCHLORIDE
     Indication: ANTIDEPRESSANT THERAPY
  3. GABAPENTIN. [Suspect]
     Active Substance: GABAPENTIN
     Indication: PAIN
     Dosage: UNK, 3X/DAY
     Route: 048
  4. VENLAFAXINE [Concomitant]
     Active Substance: VENLAFAXINE HYDROCHLORIDE
     Indication: AFFECTIVE DISORDER
  5. NAPROXEN. [Concomitant]
     Active Substance: NAPROXEN
     Indication: MULTIPLE SCLEROSIS
     Dosage: 375 MG, 3X/DAY
     Route: 048
  6. MODAFINIL. [Concomitant]
     Active Substance: MODAFINIL
     Indication: MULTIPLE SCLEROSIS
     Dosage: 100 MG, 2X/DAY
     Route: 048
  7. NEURONTIN [Suspect]
     Active Substance: GABAPENTIN
     Dosage: UNK
  8. COPAXONE [Concomitant]
     Active Substance: GLATIRAMER ACETATE
     Indication: MULTIPLE SCLEROSIS
     Dosage: 40 MG/ML, THREE TIMES A WEEK
     Route: 058

REACTIONS (1)
  - Drug ineffective for unapproved indication [Unknown]
